FAERS Safety Report 16568349 (Version 1)
Quarter: 2019Q3

REPORT INFORMATION
  Report Type: Spontaneous
  Country: GB (occurrence: GB)
  Receive Date: 20190712
  Receipt Date: 20190712
  Transmission Date: 20191004
  Serious: Yes (Other)
  Sender: FDA-Public Use
  Company Number: GB-ASCEND THERAPEUTICS-2070755

PATIENT
  Age: 47 Year
  Sex: Female

DRUGS (7)
  1. UTROGESTAN (MICRONIZED PROGESTERONE)?INDICATION FOR USE: MENOPAUSAL SY [Concomitant]
  2. TOSTRAN (TESTOSTERONE) 2 PERCENT?INDICATION FOR USE: MENOPAUSAL SYMPTO [Concomitant]
     Route: 061
  3. ESTROGEN NOS (PESSARY)?INDICATION FOR USE: MENOPAUSAL SYMPTOMS [Concomitant]
     Route: 067
  4. SERTRALINE [Concomitant]
     Active Substance: SERTRALINE HYDROCHLORIDE
  5. MIRENA [Concomitant]
     Active Substance: LEVONORGESTREL
  6. ESTROGEL [Suspect]
     Active Substance: ESTRADIOL
     Indication: MENOPAUSAL SYMPTOMS
     Route: 062
  7. CITALOPRAM [Concomitant]
     Active Substance: CITALOPRAM HYDROBROMIDE

REACTIONS (1)
  - Tachyphylaxis [Recovering/Resolving]
